FAERS Safety Report 7334313-0 (Version None)
Quarter: 2011Q1

REPORT INFORMATION
  Report Type: 
  Country: None (occurrence: None)
  Receive Date: 20110307
  Receipt Date: 20110228
  Transmission Date: 20110831
  Serious: Yes (Death)
  Sender: FDA-Public Use
  Company Number: NL-SANOFI-AVENTIS-2011SA013149

PATIENT
  Age: 55 Year
  Sex: Male
  Weight: 68 kg

DRUGS (9)
  1. INSULIN INJECTION, BIPHASIC [Concomitant]
     Indication: DIABETES MELLITUS
     Dates: start: 20101116
  2. TAXOTERE [Suspect]
     Route: 065
     Dates: start: 20110101, end: 20110101
  3. INVESTIGATIONAL DRUG [Suspect]
     Route: 048
     Dates: start: 20110110
  4. ESOMEPRAZOLE [Concomitant]
     Indication: PROPHYLAXIS
     Dates: start: 20100902
  5. OXYCODONE HYDROCHLORIDE [Concomitant]
     Indication: PAIN
     Route: 065
     Dates: start: 20101030
  6. INSULIN GLARGINE [Concomitant]
     Indication: DIABETES MELLITUS
     Route: 065
     Dates: start: 20101116
  7. TAXOTERE [Suspect]
     Route: 048
     Dates: start: 20110110, end: 20110110
  8. INVESTIGATIONAL DRUG [Suspect]
     Route: 065
     Dates: end: 20110204
  9. PANCREATIN [Concomitant]
     Indication: NEOPLASM
     Route: 065
     Dates: start: 20100902

REACTIONS (1)
  - DEATH [None]
